FAERS Safety Report 8604308-5 (Version None)
Quarter: 2012Q3

REPORT INFORMATION
  Report Type: 
  Country: None (occurrence: None)
  Receive Date: 20120820
  Receipt Date: 20120808
  Transmission Date: 20120928
  Serious: Yes (Other)
  Sender: FDA-Public Use
  Company Number: BR-JNJFOC-20120806187

PATIENT
  Sex: Male
  Weight: 75 kg

DRUGS (5)
  1. ANTIBIOTIC NOS [Suspect]
     Indication: PRODUCT USED FOR UNKNOWN INDICATION
     Route: 065
  2. REMICADE [Suspect]
     Dosage: RECEIVED 2 AMPOULES
     Route: 042
     Dates: start: 20080101
  3. REMICADE [Suspect]
     Indication: RHEUMATOID ARTHRITIS
     Dosage: RECEIVED 4 AMPOULES
     Route: 042
     Dates: start: 20120808
  4. REMICADE [Suspect]
     Indication: CROHN'S DISEASE
     Dosage: RECEIVED 2 AMPOULES
     Route: 042
     Dates: start: 20080101
  5. REMICADE [Suspect]
     Dosage: RECEIVED 4 AMPOULES
     Route: 042
     Dates: start: 20120808

REACTIONS (5)
  - CROHN'S DISEASE [None]
  - THROMBOSIS [None]
  - PYREXIA [None]
  - WEIGHT DECREASED [None]
  - INTESTINAL OBSTRUCTION [None]
